FAERS Safety Report 7797634-3 (Version None)
Quarter: 2011Q4

REPORT INFORMATION
  Report Type: 
  Country: None (occurrence: None)
  Receive Date: 20111004
  Receipt Date: 20111004
  Transmission Date: 20120403
  Serious: Yes (Hospitalization)
  Sender: FDA-Public Use
  Company Number: None

PATIENT
  Sex: Female
  Weight: 107.7 kg

DRUGS (2)
  1. CARBOPLATIN [Suspect]
     Dosage: 740 MG
     Dates: end: 20110727
  2. TAXOL [Suspect]
     Dosage: 320 MG
     Dates: end: 20110803

REACTIONS (2)
  - STAPHYLOCOCCAL SEPSIS [None]
  - WOUND INFECTION STAPHYLOCOCCAL [None]
